FAERS Safety Report 7018425-7 (Version None)
Quarter: 2010Q3

REPORT INFORMATION
  Report Type: 
  Country: None (occurrence: None)
  Receive Date: 20100924
  Receipt Date: 20100910
  Transmission Date: 20110219
  Serious: Yes (Other)
  Sender: FDA-Public Use
  Company Number: 20100440

PATIENT
  Age: 65 Year
  Sex: Female

DRUGS (7)
  1. LIDOCAINE HYDROCHLORIDE [Suspect]
     Indication: BRONCHOSCOPY
     Dosage: 10 ML
  2. LIDOCAINE HCL INJECTION, USP (0626-25) 20 MG/ML [Suspect]
     Indication: BRONCHOSCOPY
     Dosage: 10 ML
  3. DAPSONE [Concomitant]
  4. ANTIMICROBIALS [Concomitant]
  5. INSULIN [Concomitant]
  6. OMEPRAZOLE [Concomitant]
  7. IMMUNOSUPPRESSANTS [Concomitant]

REACTIONS (2)
  - METHAEMOGLOBINAEMIA [None]
  - RESPIRATORY ALKALOSIS [None]
